FAERS Safety Report 5621528-2 (Version None)
Quarter: 2008Q1

REPORT INFORMATION
  Report Type: 
  Country: None (occurrence: None)
  Receive Date: 20080211
  Receipt Date: 20080205
  Transmission Date: 20080703
  Serious: Yes (Death, Other)
  Sender: FDA-Public Use
  Company Number: AU-NOVOPROD-269986

PATIENT

DRUGS (18)
  1. NOVOSEVEN [Suspect]
     Indication: HAEMORRHAGE
     Dosage: 9.6 MG, SINGLE
     Route: 042
     Dates: start: 20070817, end: 20070817
  2. NOVOSEVEN [Suspect]
     Dosage: 7.2 MG, UNK
     Dates: start: 20070910
  3. ASPIRIN [Concomitant]
     Dates: end: 20070801
  4. PARACETAMOL [Concomitant]
  5. HEPARIN [Concomitant]
  6. ESOMEPRAZOLE MAGNESIUM [Concomitant]
  7. AVAPRO [Concomitant]
  8. CARTIA                             /00002701/ [Concomitant]
  9. ATENOLOL [Concomitant]
  10. METFORMIN HCL [Concomitant]
  11. GEMFIBROZIL [Concomitant]
  12. PRAZOSIN HCL [Concomitant]
  13. AMLODIPINE [Concomitant]
  14. ROCALTROL [Concomitant]
  15. VITAMIN K TAB [Concomitant]
  16. TETANUS TOXOID [Concomitant]
  17. PLATELETS [Concomitant]
     Dosage: 2 U, UNK
     Dates: start: 20070911
  18. GELOFUSINE                         /00203801/ [Concomitant]
     Dosage: 500 ML, UNK

REACTIONS (13)
  - ACIDOSIS [None]
  - ANAEMIA [None]
  - ATRIAL FIBRILLATION [None]
  - BRADYCARDIA [None]
  - CELLULITIS [None]
  - COAGULOPATHY [None]
  - COLOSTOMY [None]
  - DIARRHOEA [None]
  - HYPOTENSION [None]
  - PLEURAL EFFUSION [None]
  - PROCEDURAL SITE REACTION [None]
  - RENAL FAILURE [None]
  - THROMBOCYTOPENIA [None]
